FAERS Safety Report 7513975-9 (Version None)
Quarter: 2011Q2

REPORT INFORMATION
  Report Type: 
  Country: None (occurrence: None)
  Receive Date: 20110531
  Receipt Date: 20110517
  Transmission Date: 20111010
  Serious: Yes (Disabling, Other)
  Sender: FDA-Public Use
  Company Number: US-UCBSA-033114

PATIENT
  Sex: Male

DRUGS (9)
  1. ZOLOFT [Concomitant]
     Indication: DEPRESSION
  2. ZOLOFT [Concomitant]
  3. ZOLOFT [Concomitant]
  4. ZITHROMAX [Concomitant]
  5. IBUPROFEN [Concomitant]
  6. ULTRAM [Concomitant]
  7. ZOLOFT [Concomitant]
     Indication: ANXIETY
  8. MS CONTIN [Concomitant]
     Dosage: 30 MG.
  9. TUSSIONEX [Suspect]
     Indication: COUGH

REACTIONS (5)
  - BACK PAIN [None]
  - EAR PAIN [None]
  - DEPRESSION [None]
  - ANXIETY [None]
  - BRONCHITIS [None]
